FAERS Safety Report 5796840-7 (Version None)
Quarter: 2008Q3

REPORT INFORMATION
  Report Type: 
  Country: None (occurrence: None)
  Receive Date: 20080701
  Receipt Date: 20080623
  Transmission Date: 20090109
  Serious: Yes (Other)
  Sender: FDA-Public Use
  Company Number: GB-AMGEN-US284402

PATIENT
  Age: 55 Year
  Sex: Male

DRUGS (2)
  1. ENBREL [Suspect]
     Indication: TUMOUR NECROSIS FACTOR RECEPTOR-ASSOCIATED PERIODIC SYNDROME
     Dosage: UNKNOWN
     Route: 065
  2. KINERET [Suspect]
     Indication: DRUG USE FOR UNKNOWN INDICATION
     Dosage: UNKNOWN
     Route: 065

REACTIONS (4)
  - C-REACTIVE PROTEIN DECREASED [None]
  - NEUTROPENIA [None]
  - THERAPEUTIC RESPONSE DECREASED [None]
  - WHITE BLOOD CELL COUNT DECREASED [None]
